FAERS Safety Report 4775942-8 (Version None)
Quarter: 2005Q3

REPORT INFORMATION
  Report Type: 
  Country: None (occurrence: None)
  Receive Date: 20050922
  Receipt Date: 20050915
  Transmission Date: 20060218
  Serious: Yes (Other)
  Sender: FDA-Public Use
  Company Number: CA-GLAXOSMITHKLINE-A0575136A

PATIENT
  Age: 20 Year
  Sex: Female

DRUGS (3)
  1. WELLBUTRIN SR [Suspect]
     Indication: DRUG USE FOR UNKNOWN INDICATION
     Dosage: 900MG PER DAY
     Route: 048
  2. ACETAMINOPHEN [Concomitant]
     Route: 065
  3. ALCOHOL [Concomitant]
     Route: 065

REACTIONS (5)
  - AGITATION [None]
  - CONVULSION [None]
  - DELIRIUM [None]
  - OVERDOSE [None]
  - SUICIDE ATTEMPT [None]
